FAERS Safety Report 5895818-2 (Version None)
Quarter: 2008Q3

REPORT INFORMATION
  Report Type: 
  Country: None (occurrence: None)
  Receive Date: 20080828
  Receipt Date: 20080201
  Transmission Date: 20090109
  Serious: Yes (Other)
  Sender: FDA-Public Use
  Company Number: 200810703US

PATIENT
  Age: 61 Year
  Sex: Female

DRUGS (2)
  1. LASIX [Suspect]
     Indication: CARDIAC FAILURE CONGESTIVE
     Dates: start: 20071201
  2. TIKOSYN [Suspect]
     Indication: ATRIAL FLUTTER
     Dosage: 125 UG BID
     Dates: start: 20071201

REACTIONS (2)
  - BLOOD PRESSURE DECREASED [None]
  - DEHYDRATION [None]
